FAERS Safety Report 4361310-X (Version None)
Quarter: 2004Q2

REPORT INFORMATION
  Report Type: 
  Country: None (occurrence: None)
  Receive Date: 20040520
  Receipt Date: 20040510
  Transmission Date: 20050107
  Serious: Yes (Disabling)
  Sender: FDA-Public Use
  Company Number: ES-AMGEN-US076695

PATIENT
  Sex: Female

DRUGS (6)
  1. ETANERCEPT [Suspect]
     Indication: RHEUMATOID ARTHRITIS
     Route: 058
     Dates: start: 19980624
  2. PREDNISONE [Concomitant]
     Dates: start: 19980306
  3. DICLOFENAC [Concomitant]
     Dates: start: 19960501
  4. OMEPRAZOLE [Concomitant]
     Dates: start: 19980407
  5. TRANXILIUM [Concomitant]
     Dates: start: 19980312
  6. CITALOPRAM [Concomitant]
     Dates: start: 19980415

REACTIONS (1)
  - DYSPHAGIA [None]
